FAERS Safety Report 17708098 (Version 2)
Quarter: 2020Q2

REPORT INFORMATION
  Report Type: Spontaneous
  Country: US (occurrence: US)
  Receive Date: 20200425
  Receipt Date: 20200506
  Transmission Date: 20200714
  Serious: No
  Sender: FDA-Public Use
  Company Number: US-CELGENEUS-USA-20200407253

PATIENT
  Age: 39 Year
  Sex: Male

DRUGS (4)
  1. OTEZLA [Suspect]
     Active Substance: APREMILAST
     Indication: NAIL PSORIASIS
  2. TACROLIMUS. [Concomitant]
     Active Substance: TACROLIMUS
     Indication: PSORIASIS
     Dosage: TO THE GROIN AREA
     Route: 061
     Dates: start: 20200121
  3. OTEZLA [Suspect]
     Active Substance: APREMILAST
     Indication: PSORIASIS
     Dosage: 60 MILLIGRAM
     Route: 048
     Dates: start: 20191121
  4. TRIAMCINOLONE [Concomitant]
     Active Substance: TRIAMCINOLONE
     Indication: PSORIASIS
     Dosage: (ONLY WHEN FLARED)
     Route: 061
     Dates: start: 20191121

REACTIONS (1)
  - Psoriasis [Not Recovered/Not Resolved]

NARRATIVE: CASE EVENT DATE: 202003
